FAERS Safety Report 21015062 (Version 8)
Quarter: 2024Q3

REPORT INFORMATION
  Report Type: Spontaneous
  Country: JP (occurrence: JP)
  Receive Date: 20220628
  Receipt Date: 20240806
  Transmission Date: 20241016
  Serious: Yes (Hospitalization, Other)
  Sender: ABBVIE
  Company Number: JP-ABBVIE-22K-087-4419196-00

PATIENT
  Age: 71 Year
  Sex: Male

DRUGS (3)
  1. CARBIDOPA\LEVODOPA [Suspect]
     Active Substance: CARBIDOPA\LEVODOPA
     Indication: Parkinson^s disease
     Route: 050
     Dates: start: 20200905
  2. CARBIDOPA\LEVODOPA [Suspect]
     Active Substance: CARBIDOPA\LEVODOPA
  3. TRAFERMIN [Concomitant]
     Active Substance: TRAFERMIN
     Indication: Product used for unknown indication
     Dosage: (GENETICAL RECOMBINATION)
     Route: 065

REACTIONS (11)
  - Embedded device [Unknown]
  - Speech disorder [Unknown]
  - Wound complication [Unknown]
  - Wrong technique in product usage process [Unknown]
  - Complication associated with device [Recovering/Resolving]
  - Abdominal wound dehiscence [Recovering/Resolving]
  - Stoma site extravasation [Recovered/Resolved]
  - Mobility decreased [Not Recovered/Not Resolved]
  - Splenic abscess [Recovering/Resolving]
  - Device occlusion [Not Recovered/Not Resolved]
  - Post procedural fistula [Unknown]

NARRATIVE: CASE EVENT DATE: 20220527
